FAERS Safety Report 12301257 (Version 1)
Quarter: 2016Q2

REPORT INFORMATION
  Report Type: Spontaneous
  Country: FR (occurrence: FR)
  Receive Date: 20160425
  Receipt Date: 20160425
  Transmission Date: 20160815
  Serious: Yes (Hospitalization)
  Sender: FDA-Public Use
  Company Number: FR-PFIZER INC-2016222771

PATIENT
  Age: 25 Year
  Sex: Male

DRUGS (15)
  1. VITAMIN B6 [Concomitant]
     Active Substance: PYRIDOXINE HYDROCHLORIDE
     Route: 042
  2. ACUPAN [Concomitant]
     Active Substance: NEFOPAM HYDROCHLORIDE
     Dosage: 120 MG, DAILY
     Route: 042
  3. ZOPHREN /00955301/ [Concomitant]
     Active Substance: ONDANSETRON
     Indication: NAUSEA
     Dosage: 4 MG, 3X/DAY (AS NEEDED)
  4. EUPRESSYL /00631801/ [Concomitant]
     Active Substance: URAPIDIL
     Dosage: 60 MG, 2X/DAY
  5. LOXEN /00639802/ [Concomitant]
     Active Substance: NICARDIPINE
     Dosage: UNK
  6. PARACETAMOL [Concomitant]
     Active Substance: ACETAMINOPHEN
     Dosage: 1 G, 4X/DAY
  7. ACTISKENAN [Concomitant]
     Active Substance: MORPHINE SULFATE
     Dosage: 10 MG, 6 TIMES DAILY
  8. DOSTINEX [Suspect]
     Active Substance: CABERGOLINE
     Indication: PITUITARY TUMOUR BENIGN
     Dosage: 0.5 MG, WEEKLY
     Route: 048
     Dates: start: 20160319, end: 20160326
  9. NORPROLAC [Concomitant]
     Active Substance: QUINAGOLIDE HYDROCHLORIDE
     Dosage: 75 UG, DAILY
     Dates: start: 201602, end: 20160318
  10. ZOPHREN /00955301/ [Concomitant]
     Active Substance: ONDANSETRON
     Indication: VOMITING
  11. PYRIDOXINE [Concomitant]
     Active Substance: PYRIDOXINE
     Route: 042
  12. SYNCORTYL [Concomitant]
     Active Substance: DESOXYCORTICOSTERONE ACETATE
     Dosage: 10 MG DAILY, ONCE EVERY 5 DAYS
     Route: 030
  13. TRAMADOL. [Concomitant]
     Active Substance: TRAMADOL
     Dosage: 50 MG, 4X/DAY
  14. EUPANTOL [Concomitant]
     Active Substance: PANTOPRAZOLE SODIUM
     Dosage: 20 MG, DAILY
     Dates: end: 201602
  15. NORPROLAC [Concomitant]
     Active Substance: QUINAGOLIDE HYDROCHLORIDE
     Dosage: 75 UG, DAILY
     Dates: start: 20151217, end: 201602

REACTIONS (1)
  - Hallucination [Recovered/Resolved]

NARRATIVE: CASE EVENT DATE: 20160319
